FAERS Safety Report 25759484 (Version 1)
Quarter: 2025Q3

REPORT INFORMATION
  Report Type: Spontaneous
  Country: PR (occurrence: PR)
  Receive Date: 20250904
  Receipt Date: 20250904
  Transmission Date: 20251020
  Serious: No
  Sender: BOSTON SCIENTIFIC
  Company Number: PR-BSC-2025000047

PATIENT
  Age: 67 Year
  Sex: Female

DRUGS (1)
  1. VARITHENA [Suspect]
     Active Substance: POLIDOCANOL
     Indication: Varicose vein
     Dates: start: 20250225

REACTIONS (4)
  - Peripheral swelling [Recovered/Resolved]
  - Peripheral swelling [Recovered/Resolved]
  - Joint swelling [Recovered/Resolved]
  - Pain in extremity [Recovered/Resolved]

NARRATIVE: CASE EVENT DATE: 20250307
